FAERS Safety Report 15949998 (Version 2)
Quarter: 2020Q1

REPORT INFORMATION
  Report Type: Spontaneous
  Country: AU (occurrence: AU)
  Receive Date: 20190211
  Receipt Date: 20200317
  Transmission Date: 20200409
  Serious: Yes (Other)
  Sender: FDA-Public Use
  Company Number: PHHY2019AU031394

PATIENT
  Sex: Female

DRUGS (2)
  1. SYNTOCINON [Suspect]
     Active Substance: OXYTOCIN
     Indication: CAESAREAN SECTION
     Dosage: UNK
     Route: 065
  2. CEFAZOLIN [Suspect]
     Active Substance: CEFAZOLIN
     Indication: CAESAREAN SECTION
     Dosage: UNK
     Route: 065

REACTIONS (3)
  - Maternal exposure during delivery [Unknown]
  - Pain in extremity [Unknown]
  - Pain [Unknown]
